FAERS Safety Report 21031179 (Version 1)
Quarter: 2022Q3

REPORT INFORMATION
  Report Type: Spontaneous
  Country: GR (occurrence: GR)
  Receive Date: 20220701
  Receipt Date: 20220701
  Transmission Date: 20221027
  Serious: Yes (Other)
  Sender: FDA-Public Use
  Company Number: GR-IPSEN Group, Research and Development-2022-18395

PATIENT
  Age: 68 Year
  Sex: Male

DRUGS (6)
  1. DYSPORT [Suspect]
     Active Substance: ABOBOTULINUMTOXINA
     Indication: Prostate cancer metastatic
     Dosage: 1000 UNITS
     Route: 065
  2. DYSPORT [Suspect]
     Active Substance: ABOBOTULINUMTOXINA
     Indication: Off label use
  3. LANREOTIDE ACETATE [Suspect]
     Active Substance: LANREOTIDE ACETATE
     Indication: Prostate cancer metastatic
     Dosage: DOSE NOT REPORTED
     Route: 065
  4. LANREOTIDE ACETATE [Suspect]
     Active Substance: LANREOTIDE ACETATE
     Indication: Off label use
  5. DEXAMETHASONE [Suspect]
     Active Substance: DEXAMETHASONE
     Indication: Prostate cancer metastatic
     Dosage: DOSE NOT REPORTED
     Route: 065
  6. ALFUZOSIN [Concomitant]
     Active Substance: ALFUZOSIN
     Indication: Prostate cancer metastatic

REACTIONS (4)
  - Disease progression [Unknown]
  - Off label use [Unknown]
  - Product preparation error [Unknown]
  - Drug effective for unapproved indication [Unknown]
